FAERS Safety Report 13344093 (Version 5)
Quarter: 2017Q4

REPORT INFORMATION
  Report Type: Report from Study
  Country: None (occurrence: NL)
  Receive Date: 20170316
  Receipt Date: 20171029
  Transmission Date: 20180320
  Serious: Yes (Hospitalization)
  Sender: FDA-Public Use
  Company Number: NL-ABBVIE-16P-114-1701413-00

PATIENT
  Age: 63 Year
  Sex: Male
  Weight: 66 kg

DRUGS (3)
  1. DUODOPA [Suspect]
     Active Substance: CARBIDOPA\LEVODOPA
     Indication: PARKINSON^S DISEASE
     Dosage: MD: 12.0 CD: 2.8, ED: 2.5
     Route: 050
     Dates: start: 20151005
  2. CLOZAPINE. [Suspect]
     Active Substance: CLOZAPINE
     Indication: PRODUCT USED FOR UNKNOWN INDICATION
     Route: 065
  3. MADOPAR [Concomitant]
     Active Substance: BENSERAZIDE HYDROCHLORIDE\LEVODOPA
     Indication: PRODUCT USED FOR UNKNOWN INDICATION

REACTIONS (36)
  - Stoma site odour [Recovered/Resolved]
  - On and off phenomenon [Not Recovered/Not Resolved]
  - Delirium [Unknown]
  - Abdominal pain [Not Recovered/Not Resolved]
  - Gait disturbance [Not Recovered/Not Resolved]
  - Gastrointestinal disorder [Not Recovered/Not Resolved]
  - Drug effect variable [Not Recovered/Not Resolved]
  - Stoma site discharge [Recovered/Resolved]
  - Cystitis noninfective [Not Recovered/Not Resolved]
  - Cognitive disorder [Not Recovered/Not Resolved]
  - Confusional state [Unknown]
  - Stoma site reaction [Recovered/Resolved]
  - Parkinson^s disease [Unknown]
  - Muscular weakness [Not Recovered/Not Resolved]
  - Gastrointestinal disorder [Unknown]
  - Fatigue [Unknown]
  - Stoma site discharge [Not Recovered/Not Resolved]
  - Fatigue [Not Recovered/Not Resolved]
  - Weight decreased [Unknown]
  - Freezing phenomenon [Not Recovered/Not Resolved]
  - Bradykinesia [Not Recovered/Not Resolved]
  - Panic reaction [Not Recovered/Not Resolved]
  - Mental disorder [Unknown]
  - Fall [Not Recovered/Not Resolved]
  - Fall [Recovered/Resolved]
  - Stoma site inflammation [Recovered/Resolved]
  - Urinary tract infection [Recovered/Resolved]
  - Initial insomnia [Recovered/Resolved]
  - Nausea [Not Recovered/Not Resolved]
  - Stoma site erythema [Recovered/Resolved]
  - Stoma site haemorrhage [Recovered/Resolved]
  - Urinary tract infection [Recovered/Resolved]
  - Restlessness [Not Recovered/Not Resolved]
  - Fibroma [Recovered/Resolved]
  - Abnormal dreams [Not Recovered/Not Resolved]
  - Flatulence [Unknown]

NARRATIVE: CASE EVENT DATE: 201608
